FAERS Safety Report 9871295 (Version 2)
Quarter: 2014Q1

REPORT INFORMATION
  Report Type: Spontaneous
  Country: JP (occurrence: JP)
  Receive Date: 20140205
  Receipt Date: 20140313
  Transmission Date: 20141002
  Serious: Yes (Hospitalization)
  Sender: FDA-Public Use
  Company Number: JP-GLAXOSMITHKLINE-B0966044A

PATIENT
  Age: 80 Year
  Sex: Male
  Weight: 75 kg

DRUGS (10)
  1. RELVAR ELLIPTA (FLUTICASONE FUROATE/VILANTEROL) [Suspect]
     Indication: ASTHMA
     Dosage: 100MCG PER DAY
     Route: 055
     Dates: start: 20140111, end: 20140118
  2. LORAMET [Concomitant]
     Indication: INSOMNIA
     Dosage: 4MG PER DAY
     Route: 048
     Dates: start: 19960212
  3. ANGIOTENSIN II ANTAGONISTS [Concomitant]
     Indication: HYPERTENSION
     Dosage: 20MG PER DAY
     Route: 048
  4. HUSCODE [Concomitant]
     Indication: COUGH
     Dosage: 2IUAX THREE TIMES PER DAY
     Route: 048
     Dates: start: 20140110
  5. PA [Concomitant]
     Indication: RHINORRHOEA
     Dosage: 2IUAX THREE TIMES PER DAY
     Route: 048
     Dates: start: 20140110
  6. KIPRES [Concomitant]
     Indication: ASTHMA
     Dosage: 10MG PER DAY
     Route: 048
     Dates: start: 20140110
  7. UNICON [Concomitant]
     Indication: ASTHMA
     Dosage: 100MG PER DAY
     Route: 048
     Dates: start: 20140110
  8. BROCIN CODEINE [Concomitant]
     Indication: COUGH
     Dosage: 2ML THREE TIMES PER DAY
     Route: 048
     Dates: start: 20140114
  9. MYSLEE [Concomitant]
     Route: 048
  10. ADOAIR [Concomitant]
     Dosage: 2IUAX TWICE PER DAY
     Route: 055

REACTIONS (6)
  - Pneumonia [Recovered/Resolved]
  - Pyrexia [Unknown]
  - Malaise [Unknown]
  - Decreased appetite [Unknown]
  - Cough [Unknown]
  - Sputum retention [Unknown]
